FAERS Safety Report 5556028-1 (Version None)
Quarter: 2007Q4

REPORT INFORMATION
  Report Type: 
  Country: None (occurrence: None)
  Receive Date: 20071213
  Receipt Date: 20071206
  Transmission Date: 20080405
  Serious: Yes (Hospitalization)
  Sender: FDA-Public Use
  Company Number: RO-ABBOTT-07P-135-0427609-00

PATIENT
  Age: 19 Year
  Sex: Female
  Weight: 48 kg

DRUGS (2)
  1. KALETRA [Suspect]
     Indication: HIV INFECTION CDC CATEGORY C3
     Route: 048
     Dates: start: 20070427, end: 20071120
  2. LAMIVUDINE + ZIDOVUDINE [Concomitant]
     Indication: HIV INFECTION CDC CATEGORY C3
     Route: 048
     Dates: start: 20070427, end: 20071120

REACTIONS (5)
  - GENERAL PHYSICAL HEALTH DETERIORATION [None]
  - MENINGITIS CRYPTOCOCCAL [None]
  - NAUSEA [None]
  - TREATMENT FAILURE [None]
  - TREATMENT NONCOMPLIANCE [None]
